FAERS Safety Report 11080215 (Version 1)
Quarter: 2015Q2

REPORT INFORMATION
  Report Type: Spontaneous
  Country: IT (occurrence: None)
  Receive Date: 20150429
  Receipt Date: 20150429
  Transmission Date: 20150821
  Serious: Yes (Hospitalization, Other)
  Sender: FDA-Public Use
  Company Number: 2015HINLIT0365

PATIENT
  Age: 47 Year
  Sex: Female

DRUGS (4)
  1. RALTEGRAVIR AND ETRAVIRINE [Suspect]
     Active Substance: ETRAVIRINE\RALTEGRAVIR
     Indication: VIRAL INFECTION
  2. DARUNAVIR [Suspect]
     Active Substance: DARUNAVIR
     Indication: VIRAL INFECTION
  3. RITONAVIR. [Suspect]
     Active Substance: RITONAVIR
     Indication: VIRAL INFECTION
  4. TENOFOVIR [Suspect]
     Active Substance: TENOFOVIR
     Indication: VIRAL INFECTION

REACTIONS (7)
  - Dysarthria [None]
  - Dizziness [None]
  - Pain [None]
  - Muscular weakness [None]
  - Confusional state [None]
  - Headache [None]
  - Neuropathy peripheral [None]

NARRATIVE: CASE EVENT DATE: 201303
